FAERS Safety Report 5306167-5 (Version None)
Quarter: 2007Q2

REPORT INFORMATION
  Report Type: 
  Country: None (occurrence: None)
  Receive Date: 20070417
  Receipt Date: 20070402
  Transmission Date: 20071010
  Serious: Yes (Other)
  Sender: FDA-Public Use
  Company Number: 2007SP006044

PATIENT
  Age: 51 Year
  Sex: Female

DRUGS (1)
  1. CLARITIN REDITABS [Suspect]
     Indication: HYPERSENSITIVITY
     Dosage: 10 MG; ; PO
     Route: 048
     Dates: start: 20070224

REACTIONS (2)
  - OEDEMA PERIPHERAL [None]
  - PALPITATIONS [None]
